FAERS Safety Report 17580362 (Version 4)
Quarter: 2020Q4

REPORT INFORMATION
  Report Type: Report from Study
  Country: CN (occurrence: CN)
  Receive Date: 20200325
  Receipt Date: 20201207
  Transmission Date: 20210113
  Serious: Yes (Hospitalization)
  Sender: FDA-Public Use
  Company Number: CN-PFIZER INC-2020122194

PATIENT
  Age: 49 Year
  Sex: Male
  Weight: 60.75 kg

DRUGS (24)
  1. CYTARABINE. [Suspect]
     Active Substance: CYTARABINE
     Dosage: 5340 MG, Q12H
     Route: 041
     Dates: start: 20191121, end: 20191122
  2. CYTARABINE. [Suspect]
     Active Substance: CYTARABINE
     Dosage: 5340 MG, Q12H
     Route: 041
     Dates: start: 20191123, end: 20191124
  3. CYTARABINE. [Suspect]
     Active Substance: CYTARABINE
     Dosage: 5340 MG, Q12H
     Route: 041
     Dates: start: 20191222, end: 20191222
  4. CYTARABINE. [Suspect]
     Active Substance: CYTARABINE
     Dosage: 5160 MG, Q12H
     Route: 041
     Dates: start: 20200305, end: 20200306
  5. CYTARABINE. [Suspect]
     Active Substance: CYTARABINE
     Dosage: 5250 MG, Q12H
     Route: 041
     Dates: start: 20200121, end: 20200121
  6. CYTARABINE. [Suspect]
     Active Substance: CYTARABINE
     Dosage: 5250 MG, Q12H
     Route: 041
     Dates: start: 20200123, end: 20200123
  7. PLACEBO [Suspect]
     Active Substance: UNSPECIFIED INGREDIENT
     Dosage: UNK, 1X/DAY
     Route: 048
     Dates: start: 20200219
  8. SODIUM BICARBONATE. [Concomitant]
     Active Substance: SODIUM BICARBONATE
     Indication: ACUTE MYELOID LEUKAEMIA
     Dosage: 125 ML, 1X/DAY
     Route: 041
     Dates: start: 20200305, end: 20200309
  9. CYTARABINE. [Suspect]
     Active Substance: CYTARABINE
     Dosage: 5340 MG, Q12H
     Route: 041
     Dates: start: 20191119, end: 20191120
  10. CYTARABINE. [Suspect]
     Active Substance: CYTARABINE
     Dosage: 5250 MG, Q12H
     Route: 041
     Dates: start: 20200119, end: 20200119
  11. CYTARABINE. [Suspect]
     Active Substance: CYTARABINE
     Dosage: 5160 MG, Q12H
     Route: 041
     Dates: start: 20200307, end: 20200308
  12. PLACEBO [Suspect]
     Active Substance: UNSPECIFIED INGREDIENT
     Indication: ACUTE MYELOID LEUKAEMIA
     Dosage: UNK, 1X/DAY
     Route: 048
     Dates: start: 20190904, end: 20200131
  13. DAUNORUBICIN [Suspect]
     Active Substance: DAUNORUBICIN
     Dosage: 104.4 MG, QD
     Route: 041
     Dates: start: 20191012, end: 20191014
  14. TEPRENONE [Concomitant]
     Active Substance: TEPRENONE
     Indication: PROPHYLAXIS
     Dosage: 50 MG, 3X/DAY
     Route: 048
     Dates: start: 20200305, end: 20200310
  15. CYTARABINE. [Suspect]
     Active Substance: CYTARABINE
     Dosage: 5340 MG, Q12H
     Route: 041
     Dates: start: 20191224, end: 20191224
  16. DAUNORUBICIN [Suspect]
     Active Substance: DAUNORUBICIN
     Indication: ACUTE MYELOID LEUKAEMIA
     Dosage: 106.8 MG, QD
     Route: 041
     Dates: start: 20190904, end: 20190906
  17. FUROSEMIDE. [Concomitant]
     Active Substance: FUROSEMIDE
     Indication: POLYURIA
     Dosage: 20 MG, 1X/DAY
     Route: 042
     Dates: start: 20200305, end: 20200310
  18. CYTARABINE. [Suspect]
     Active Substance: CYTARABINE
     Indication: ACUTE MYELOID LEUKAEMIA
     Dosage: 178 MG, QD
     Route: 041
     Dates: start: 20190904, end: 20190910
  19. CYTARABINE. [Suspect]
     Active Substance: CYTARABINE
     Dosage: 5160 MG, Q12H
     Route: 041
     Dates: start: 20200309, end: 20200310
  20. TROPISETRON HYDROCHLORIDE [Concomitant]
     Active Substance: TROPISETRON HYDROCHLORIDE
     Indication: VOMITING
     Dosage: 5 MG, 1X/DAY
     Route: 042
     Dates: start: 20200305, end: 20200310
  21. CYTARABINE. [Suspect]
     Active Substance: CYTARABINE
     Dosage: 174 MG, QD
     Route: 041
     Dates: start: 20191012, end: 20191018
  22. GLUCOSE AND SODIUM CHLORIDE [Concomitant]
     Active Substance: DEXTROSE\SODIUM CHLORIDE
     Indication: ACUTE MYELOID LEUKAEMIA
     Dosage: 500 ML, 1X/DAY
     Route: 041
     Dates: start: 20200305, end: 20200308
  23. CYTARABINE. [Suspect]
     Active Substance: CYTARABINE
     Dosage: 5340 MG, Q12H
     Route: 041
     Dates: start: 20191220, end: 20191220
  24. OMEPRAZOLE. [Concomitant]
     Active Substance: OMEPRAZOLE
     Indication: PROPHYLAXIS
     Dosage: 20 MG (ENTERIC COATED), 1X/DAY
     Route: 048
     Dates: start: 20200305, end: 20200310

REACTIONS (1)
  - Febrile infection [Recovered/Resolved]

NARRATIVE: CASE EVENT DATE: 20200320
